FAERS Safety Report 21509743 (Version 3)
Quarter: 2023Q4

REPORT INFORMATION
  Report Type: Spontaneous
  Country: JP (occurrence: JP)
  Receive Date: 20221026
  Receipt Date: 20231117
  Transmission Date: 20240110
  Serious: Yes (Death, Other)
  Sender: FDA-Public Use
  Company Number: JP-JAZZ-2021-JP-022508

PATIENT
  Age: 54 Year
  Sex: Male
  Weight: 46 kg

DRUGS (10)
  1. DEFITELIO [Suspect]
     Active Substance: DEFIBROTIDE SODIUM
     Indication: Venoocclusive liver disease
     Dosage: 17 MILLIGRAM/KILOGRAM, QD
     Route: 042
     Dates: start: 20200924, end: 20201117
  2. DEFITELIO [Suspect]
     Active Substance: DEFIBROTIDE SODIUM
     Dosage: 6 MILLIGRAM/KILOGRAM, QD
     Route: 042
     Dates: start: 2020, end: 2020
  3. DEFITELIO [Suspect]
     Active Substance: DEFIBROTIDE SODIUM
     Dosage: 4 MILLIGRAM/KILOGRAM, QD
     Route: 042
     Dates: start: 2020, end: 2020
  4. DEFITELIO [Suspect]
     Active Substance: DEFIBROTIDE SODIUM
     Dosage: 12 MILLIGRAM/KILOGRAM, Q8H
     Route: 042
     Dates: start: 2020, end: 2020
  5. DEFITELIO [Suspect]
     Active Substance: DEFIBROTIDE SODIUM
     Dosage: 16 MILLIGRAM/KILOGRAM, Q6H
     Route: 042
     Dates: start: 2020, end: 2020
  6. DEFITELIO [Suspect]
     Active Substance: DEFIBROTIDE SODIUM
     Dosage: 9 MILLIGRAM/KILOGRAM, QD
     Route: 042
     Dates: start: 20201118, end: 20201222
  7. THROMBOMODULIN ALFA [Concomitant]
     Active Substance: THROMBOMODULIN ALFA
     Indication: Product used for unknown indication
     Dosage: UNK
     Dates: start: 20200921, end: 20200926
  8. TACROLIMUS [Concomitant]
     Active Substance: TACROLIMUS
     Indication: Product used for unknown indication
  9. MYCOPHENOLATE MOFETIL [Concomitant]
     Active Substance: MYCOPHENOLATE MOFETIL
     Indication: Product used for unknown indication
  10. METHYLPREDNISOLONE [Concomitant]
     Active Substance: METHYLPREDNISOLONE
     Indication: Acute graft versus host disease
     Dosage: 1 MILLIGRAM/KILOGRAM

REACTIONS (11)
  - Hepatic failure [Fatal]
  - Ascites [Fatal]
  - Acute graft versus host disease [Unknown]
  - Decreased appetite [Unknown]
  - Melaena [Unknown]
  - Epistaxis [Recovered/Resolved]
  - Drug ineffective [Unknown]
  - Stomatitis [Unknown]
  - Diarrhoea [Unknown]
  - Faeces discoloured [Unknown]
  - Off label use [Unknown]

NARRATIVE: CASE EVENT DATE: 20200101
